FAERS Safety Report 7650901-6 (Version None)
Quarter: 2011Q3

REPORT INFORMATION
  Report Type: 
  Country: None (occurrence: None)
  Receive Date: 20110802
  Receipt Date: 20110718
  Transmission Date: 20111222
  Serious: Yes (Other)
  Sender: FDA-Public Use
  Company Number: GB-ARROW GEN-2011-11177

PATIENT
  Age: 82 Year
  Sex: Female

DRUGS (3)
  1. DOXAZOSIN MESYLATE [Suspect]
     Indication: HYPERTENSION
  2. DONEPEZIL HCL [Suspect]
     Indication: DEMENTIA ALZHEIMER'S TYPE
     Dosage: 5 MG, UNKNOWN
  3. ATENOLOL [Suspect]
     Indication: HYPERTENSION
     Dosage: UNK

REACTIONS (9)
  - GASTROENTERITIS [None]
  - PURPURA [None]
  - DEMENTIA ALZHEIMER'S TYPE [None]
  - COGNITIVE DISORDER [None]
  - DRUG HYPERSENSITIVITY [None]
  - DRUG ERUPTION [None]
  - RASH MACULO-PAPULAR [None]
  - VOMITING [None]
  - DIARRHOEA [None]
